FAERS Safety Report 22160149 (Version 1)
Quarter: 2023Q1

REPORT INFORMATION
  Report Type: Spontaneous
  Country: PL (occurrence: PL)
  Receive Date: 20230331
  Receipt Date: 20230331
  Transmission Date: 20230418
  Serious: Yes (Other)
  Sender: FDA-Public Use
  Company Number: PL-002147023-NVSC2023PL074138

PATIENT

DRUGS (2)
  1. RUXOLITINIB [Suspect]
     Active Substance: RUXOLITINIB
     Indication: Myelofibrosis
     Dosage: UNK (2 X 20 MG)
     Route: 065
     Dates: start: 2017, end: 2019
  2. RUXOLITINIB [Suspect]
     Active Substance: RUXOLITINIB
     Dosage: UNK (2 X 15 MG DOSE)
     Route: 065
     Dates: start: 2019

REACTIONS (2)
  - Pulmonary tuberculosis [Unknown]
  - Splenomegaly [Unknown]
